FAERS Safety Report 22637032 (Version 1)
Quarter: 2023Q2

REPORT INFORMATION
  Report Type: Spontaneous
  Country: IT (occurrence: IT)
  Receive Date: 20230626
  Receipt Date: 20230626
  Transmission Date: 20230721
  Serious: Yes (Other)
  Sender: FDA-Public Use
  Company Number: IT-ORGANON-O2306ITA002736

PATIENT
  Sex: Female

DRUGS (3)
  1. NEXPLANON [Suspect]
     Active Substance: ETONOGESTREL
     Indication: Contraception
     Dosage: 1 IMPLANT FOR THREE-YEAR IN RIGHT ARM
     Route: 059
     Dates: start: 20200420
  2. NEXPLANON [Suspect]
     Active Substance: ETONOGESTREL
     Indication: Endometriosis
  3. NEXPLANON [Concomitant]
     Active Substance: ETONOGESTREL
     Indication: Contraception
     Dosage: 1 IMPLANT FOR THREE-YEAR IN RIGHT ARM
     Route: 059
     Dates: start: 20170522, end: 20200420

REACTIONS (13)
  - Device dislocation [Recovered/Resolved]
  - Orthopaedic procedure [Unknown]
  - Endometriosis [Unknown]
  - Dysaesthesia [Unknown]
  - Hypersensitivity [Unknown]
  - Paraesthesia [Unknown]
  - Asthenia [Unknown]
  - Electric shock sensation [Unknown]
  - Scar [Unknown]
  - Complication of device removal [Recovered/Resolved]
  - Complication associated with device [Recovered/Resolved]
  - Device placement issue [Recovered/Resolved]
  - Product use in unapproved indication [Unknown]

NARRATIVE: CASE EVENT DATE: 20200420
